FAERS Safety Report 20171813 (Version 2)
Quarter: 2022Q3

REPORT INFORMATION
  Report Type: Spontaneous
  Country: US (occurrence: US)
  Receive Date: 20211210
  Receipt Date: 20220728
  Transmission Date: 20221027
  Serious: Yes (Other)
  Sender: FDA-Public Use
  Company Number: US-MLMSERVICE-20211124-3234455-1

PATIENT

DRUGS (5)
  1. PREDNISOLONE [Suspect]
     Active Substance: PREDNISOLONE
     Indication: Anterior chamber inflammation
     Dosage: UNK UNK, QD
     Route: 061
  2. CYCLOPENTOLATE [Suspect]
     Active Substance: CYCLOPENTOLATE
     Indication: Anterior chamber inflammation
     Dosage: UNK, QD
     Route: 065
  3. FLUOROURACIL [Concomitant]
     Active Substance: FLUOROURACIL
     Indication: Corneal epithelial downgrowth
     Dosage: 0.05 ML
  4. FLUOROURACIL [Concomitant]
     Active Substance: FLUOROURACIL
     Dosage: 0.05 ML (SECOND DOSE ONE MONTH LATER.)
  5. BEVACIZUMAB [Concomitant]
     Active Substance: BEVACIZUMAB
     Indication: Corneal epithelial downgrowth
     Dosage: 0.05 ML

REACTIONS (2)
  - Intraocular pressure increased [Recovered/Resolved]
  - Glaucoma [Recovered/Resolved]
